FAERS Safety Report 11633497 (Version 1)
Quarter: 2015Q4

REPORT INFORMATION
  Report Type: Spontaneous
  Country: US (occurrence: US)
  Receive Date: 20151015
  Receipt Date: 20151015
  Transmission Date: 20160304
  Serious: Yes (Hospitalization, Other)
  Sender: FDA-Public Use
  Company Number: US-ASTRAZENECA-2015SE98136

PATIENT
  Sex: Female
  Weight: 84 kg

DRUGS (10)
  1. ONGLYZA [Suspect]
     Active Substance: SAXAGLIPTIN HYDROCHLORIDE
     Indication: TYPE 2 DIABETES MELLITUS
     Route: 048
  2. PEPCID [Concomitant]
     Active Substance: FAMOTIDINE
     Route: 048
  3. METFORMIN [Concomitant]
     Active Substance: METFORMIN HYDROCHLORIDE
     Indication: TYPE 2 DIABETES MELLITUS
     Route: 048
  4. COZAAR [Concomitant]
     Active Substance: LOSARTAN POTASSIUM
     Route: 048
  5. DESYREL [Concomitant]
     Active Substance: TRAZODONE HYDROCHLORIDE
     Route: 048
  6. GLIMEPIRIDE. [Concomitant]
     Active Substance: GLIMEPIRIDE
     Indication: TYPE 2 DIABETES MELLITUS
     Route: 048
  7. NEURONTIN [Concomitant]
     Active Substance: GABAPENTIN
     Route: 048
  8. FARXIGA [Suspect]
     Active Substance: DAPAGLIFLOZIN PROPANEDIOL
     Indication: TYPE 2 DIABETES MELLITUS
     Route: 048
  9. NORVASC [Concomitant]
     Active Substance: AMLODIPINE BESYLATE
     Route: 048
  10. TRICOR [Concomitant]
     Active Substance: FENOFIBRATE
     Route: 048

REACTIONS (3)
  - Blood glucose decreased [Recovering/Resolving]
  - Diabetic ketoacidosis [Recovered/Resolved]
  - Anion gap increased [Recovered/Resolved]
